FAERS Safety Report 16472109 (Version 2)
Quarter: 2019Q3

REPORT INFORMATION
  Report Type: Spontaneous
  Country: JP (occurrence: JP)
  Receive Date: 20190625
  Receipt Date: 20190709
  Transmission Date: 20191004
  Serious: Yes (Hospitalization)
  Sender: FDA-Public Use
  Company Number: JP-TEVA-2019-JP-1066909

PATIENT
  Age: 29 Year
  Sex: Male

DRUGS (6)
  1. VORICONAZOLE. [Suspect]
     Active Substance: VORICONAZOLE
     Indication: ENCEPHALITIS
     Route: 065
  2. LIPOSOMAL AMPHOTERICIN B [Suspect]
     Active Substance: AMPHOTERICIN B
     Indication: ENCEPHALITIS
     Route: 065
  3. FLUCYTOSINE. [Suspect]
     Active Substance: FLUCYTOSINE
     Indication: ENCEPHALITIS
     Dosage: 25 MG/KG*4
     Route: 065
  4. ITRACONAZOLE. [Suspect]
     Active Substance: ITRACONAZOLE
     Indication: ENCEPHALITIS
     Route: 065
  5. TAZOBACTAM/PIPERACILLIN [Concomitant]
     Active Substance: PIPERACILLIN SODIUM\TAZOBACTAM SODIUM
     Indication: SEPSIS
     Route: 065
  6. LIPOSOMAL AMPHOTERICIN B [Suspect]
     Active Substance: AMPHOTERICIN B
     Route: 065

REACTIONS (8)
  - Hypokalaemia [Unknown]
  - Magnesium deficiency [Unknown]
  - Visual field defect [Recovered/Resolved]
  - Immune system disorder [Recovered/Resolved]
  - Condition aggravated [Recovered/Resolved]
  - Seizure [Recovered/Resolved]
  - Encephalitis [Recovered/Resolved]
  - Hypoaesthesia [Recovered/Resolved]
